FAERS Safety Report 14386789 (Version 2)
Quarter: 2018Q3

REPORT INFORMATION
  Report Type: Spontaneous
  Country: US (occurrence: US)
  Receive Date: 20180115
  Receipt Date: 20180801
  Transmission Date: 20181010
  Serious: Yes (Other)
  Sender: FDA-Public Use
  Company Number: US-SA-2017SA118160

PATIENT
  Age: 61 Year
  Sex: Female
  Weight: 104 kg

DRUGS (15)
  1. FLUCONAZOLE. [Concomitant]
     Active Substance: FLUCONAZOLE
  2. ACYCLOVIR [ACICLOVIR] [Concomitant]
     Active Substance: ACYCLOVIR
  3. PEPCID AC [Concomitant]
     Active Substance: FAMOTIDINE
  4. IBUPROFEN. [Concomitant]
     Active Substance: IBUPROFEN
  5. TAXOTERE [Suspect]
     Active Substance: DOCETAXEL
     Dosage: 164 MG,Q3W
     Route: 042
     Dates: start: 20150624, end: 20150624
  6. DEXAMETHASONE. [Concomitant]
     Active Substance: DEXAMETHASONE
  7. NEULASTA [Concomitant]
     Active Substance: PEGFILGRASTIM
  8. ALOXI [Concomitant]
     Active Substance: PALONOSETRON HYDROCHLORIDE
  9. DECADRON [DEXAMETHASONE ACETATE] [Concomitant]
  10. TAXOTERE [Suspect]
     Active Substance: DOCETAXEL
     Indication: BREAST CANCER FEMALE
     Dosage: 164 MG,Q3W
     Route: 042
     Dates: start: 20150311, end: 20150311
  11. LEVOTHYROXINE. [Concomitant]
     Active Substance: LEVOTHYROXINE
  12. FLUTICASONE. [Concomitant]
     Active Substance: FLUTICASONE
  13. NEOSAR [Concomitant]
     Active Substance: CYCLOPHOSPHAMIDE
     Dosage: 600 MG/M2,UNK
     Route: 065
  14. ONDANSETRON HYDROCHLORIDE. [Concomitant]
     Active Substance: ONDANSETRON HYDROCHLORIDE
  15. METHYLPREDNISOLONE. [Concomitant]
     Active Substance: METHYLPREDNISOLONE

REACTIONS (2)
  - Alopecia [Recovering/Resolving]
  - Psychological trauma [Unknown]

NARRATIVE: CASE EVENT DATE: 201504
